FAERS Safety Report 10106639 (Version 2)
Quarter: 2014Q3

REPORT INFORMATION
  Report Type: Other
  Country: US (occurrence: US)
  Receive Date: 20140424
  Receipt Date: 20140702
  Transmission Date: 20150326
  Serious: Yes (Hospitalization, Other)
  Sender: FDA-Public Use
  Company Number: US-GSKPPD-2014GSK001745

PATIENT
  Age: 45 Year
  Sex: Male

DRUGS (5)
  1. AVANDIA [Suspect]
     Active Substance: ROSIGLITAZONE MALEATE
     Indication: DIABETES MELLITUS
     Route: 048
     Dates: end: 200710
  2. CAPTOPRIL. [Concomitant]
     Active Substance: CAPTOPRIL
  3. ASPIRIN. [Concomitant]
     Active Substance: ASPIRIN
  4. LASIX [Concomitant]
     Active Substance: FUROSEMIDE
  5. ATENOLOL. [Concomitant]
     Active Substance: ATENOLOL

REACTIONS (2)
  - Cardiac failure congestive [Recovered/Resolved]
  - Myocardial infarction [None]

NARRATIVE: CASE EVENT DATE: 20071021
